FAERS Safety Report 5650819-4 (Version None)
Quarter: 2008Q1

REPORT INFORMATION
  Report Type: 
  Country: None (occurrence: None)
  Receive Date: 20080305
  Receipt Date: 20080228
  Transmission Date: 20080703
  Serious: Yes (Other)
  Sender: FDA-Public Use
  Company Number: B0510880A

PATIENT
  Sex: Female

DRUGS (3)
  1. NIQUITIN CQ CLEAR 21MG [Suspect]
     Route: 062
  2. NICORETTE [Suspect]
     Route: 062
  3. STEROIDS [Concomitant]

REACTIONS (3)
  - HALLUCINATION [None]
  - ORAL DISCOMFORT [None]
  - TREMOR [None]
